FAERS Safety Report 5776269-8 (Version None)
Quarter: 2008Q2

REPORT INFORMATION
  Report Type: 
  Country: None (occurrence: None)
  Receive Date: 20080616
  Receipt Date: 20080603
  Transmission Date: 20081010
  Serious: Yes (Other)
  Sender: FDA-Public Use
  Company Number: A-NJ2008-20587

PATIENT
  Age: 78 Year
  Sex: Female
  Weight: 79.4 kg

DRUGS (15)
  1. TRACLEER [Suspect]
     Indication: PULMONARY HYPERTENSION
     Dosage: ORAL
     Route: 048
     Dates: start: 20071114
  2. ZETIA [Concomitant]
  3. AMARYL [Concomitant]
  4. METFORMIN HCL [Concomitant]
  5. TYLENOL ARTHRITIS (PARACETAMOL) [Concomitant]
  6. ASPIRIN [Concomitant]
  7. FERROUS SULFATE TAB [Concomitant]
  8. JANUVIA [Concomitant]
  9. ALPHAGAN (BRIMONIDINE) [Concomitant]
  10. HYDROCHLOROTHIAZIDE [Concomitant]
  11. ENALAPRIL MALEATE [Concomitant]
  12. THEOPHYLLINE [Concomitant]
  13. ADVAIR DISKUS 100/50 [Concomitant]
  14. SPIRIVA [Concomitant]
  15. OXYGEN (OXYGEN) [Concomitant]

REACTIONS (10)
  - ANTINUCLEAR ANTIBODY POSITIVE [None]
  - AUTOIMMUNE HEPATITIS [None]
  - BLOOD GLUCOSE INCREASED [None]
  - DYSPNOEA [None]
  - FATIGUE [None]
  - HAEMATOCRIT DECREASED [None]
  - HAEMOGLOBIN DECREASED [None]
  - HEPATITIS CHRONIC ACTIVE [None]
  - NEUTROPHIL PERCENTAGE INCREASED [None]
  - RED BLOOD CELL COUNT DECREASED [None]
